FAERS Safety Report 13148515 (Version 2)
Quarter: 2017Q1

REPORT INFORMATION
  Report Type: Report from Study
  Country: US (occurrence: US)
  Receive Date: 20170124
  Receipt Date: 20170124
  Transmission Date: 20170428
  Serious: No
  Sender: FDA-Public Use
  Company Number: US-AMGEN-USASL2016175127

PATIENT
  Age: 74 Year
  Sex: Male

DRUGS (2)
  1. REPATHA [Suspect]
     Active Substance: EVOLOCUMAB
     Indication: BLOOD CHOLESTEROL ABNORMAL
     Dosage: 140 MG, 2 MONTH
     Route: 065
     Dates: start: 201610
  2. PRALUENT [Concomitant]
     Active Substance: ALIROCUMAB
     Dosage: 150 MG, 2 MONTH

REACTIONS (2)
  - Unevaluable event [Unknown]
  - Off label use [Unknown]
